FAERS Safety Report 7774035 (Version 14)
Quarter: 2013Q2

REPORT INFORMATION
  Report Type: Report from Study
  Country: NL (occurrence: NL)
  Receive Date: 20110126
  Receipt Date: 20130521
  Transmission Date: 20140414
  Serious: Yes (Death, Hospitalization, Other)
  Sender: FDA-Public Use
  Company Number: NL-BIOGENIDEC-2011BI002033

PATIENT
  Age: 50 Year
  Sex: Female
  Weight: 46 kg

DRUGS (11)
  1. TYSABRI [Suspect]
     Indication: RELAPSING-REMITTING MULTIPLE SCLEROSIS
     Route: 042
     Dates: start: 20080725, end: 20101217
  2. PARACETAMOL [Concomitant]
  3. BACLOFEN [Concomitant]
     Dates: start: 2010
  4. BACLOFEN [Concomitant]
     Dates: start: 2011
  5. DIAZEPAM [Concomitant]
  6. BETAHISTINE [Concomitant]
  7. ZOPICLONE [Concomitant]
  8. PAROXETIN [Concomitant]
  9. ZOLPIDEM [Concomitant]
  10. OMEPRAZOLE [Concomitant]
  11. NAPROXEN [Concomitant]

REACTIONS (3)
  - Urosepsis [Fatal]
  - Progressive multifocal leukoencephalopathy [Not Recovered/Not Resolved]
  - Immune reconstitution inflammatory syndrome [Unknown]
